FAERS Safety Report 7790553-8 (Version None)
Quarter: 2011Q3

REPORT INFORMATION
  Report Type: 
  Country: None (occurrence: None)
  Receive Date: 20110930
  Receipt Date: 20110606
  Transmission Date: 20111222
  Serious: No
  Sender: FDA-Public Use
  Company Number: US-BAYER-2011-048475

PATIENT
  Sex: Male

DRUGS (1)
  1. AVELOX [Suspect]
     Indication: PNEUMONIA PRIMARY ATYPICAL
     Dosage: 400 MG, QD
     Route: 048
     Dates: start: 20100101

REACTIONS (5)
  - TENDON PAIN [None]
  - ARTHRALGIA [None]
  - PAIN [None]
  - JOINT DISLOCATION [None]
  - ROTATOR CUFF SYNDROME [None]
